FAERS Safety Report 18240697 (Version 1)
Quarter: 2020Q3

REPORT INFORMATION
  Report Type: Spontaneous
  Country: US (occurrence: US)
  Receive Date: 20200904
  Receipt Date: 20200904
  Transmission Date: 20201103
  Serious: Yes (Life-Threatening)
  Sender: FDA-Public Use
  Company Number: None

PATIENT
  Age: 77 Year
  Sex: Female
  Weight: 51.75 kg

DRUGS (5)
  1. PROPRANOLOL [Concomitant]
     Active Substance: PROPRANOLOL HYDROCHLORIDE
  2. ONE?A?DAY NOS [Concomitant]
     Active Substance: MINERALS\VITAMINS
  3. LISINOPRIL AND HYDROCHLOROTHIAZIDE [Suspect]
     Active Substance: HYDROCHLOROTHIAZIDE\LISINOPRIL
     Indication: FLUID RETENTION
     Dosage: ?          QUANTITY:1 TABLET(S);?
     Route: 048
     Dates: start: 20190328, end: 20200120
  4. LISINOPRIL. [Concomitant]
     Active Substance: LISINOPRIL
  5. ELIQUIS ON [Concomitant]

REACTIONS (6)
  - Blood calcium increased [None]
  - Cardiac flutter [None]
  - Atrial fibrillation [None]
  - Chest discomfort [None]
  - Pain in jaw [None]
  - Cerebrovascular accident [None]

NARRATIVE: CASE EVENT DATE: 20200211
